FAERS Safety Report 5336107-4 (Version None)
Quarter: 2007Q2

REPORT INFORMATION
  Report Type: 
  Country: None (occurrence: None)
  Receive Date: 20070302
  Receipt Date: 20061121
  Transmission Date: 20071010
  Serious: No
  Sender: FDA-Public Use
  Company Number: PHEH2006US14526

PATIENT
  Age: 68 Year
  Sex: Female

DRUGS (3)
  1. ENABLEX [Suspect]
     Indication: HYPERTONIC BLADDER
     Dosage: SEE IMAGE
     Route: 048
     Dates: start: 20061108, end: 20061112
  2. ENABLEX [Suspect]
     Indication: HYPERTONIC BLADDER
     Dosage: SEE IMAGE
     Route: 048
     Dates: start: 20061113
  3. INFLUENZA VACCINE(INFLUENZA VACCINE) [Suspect]
     Dosage: ONCE/SINGLE

REACTIONS (2)
  - DRUG INEFFECTIVE [None]
  - DYSPNOEA [None]
